FAERS Safety Report 9527209 (Version 3)
Quarter: 2013Q4

REPORT INFORMATION
  Report Type: Spontaneous
  Country: US (occurrence: US)
  Receive Date: 20130917
  Receipt Date: 20131014
  Transmission Date: 20140711
  Serious: Yes (Other)
  Sender: FDA-Public Use
  Company Number: US-AMGEN-USASP2013063780

PATIENT
  Age: 65 Year
  Sex: Female
  Weight: 79.37 kg

DRUGS (12)
  1. ENBREL [Suspect]
     Indication: RHEUMATOID ARTHRITIS
     Dosage: 50 MG, QWK
     Route: 058
     Dates: start: 20130701
  2. ASPIRIN [Concomitant]
     Dosage: UNK
  3. ESCITALOPRAM [Concomitant]
     Dosage: UNK
  4. NORVASC [Concomitant]
     Dosage: UNK
  5. PERCOCET                           /00867901/ [Concomitant]
     Dosage: UNK
  6. PREDNISONE [Concomitant]
     Indication: RHEUMATOID ARTHRITIS
     Dosage: 5 MG, AS NECESSARY
     Route: 048
  7. CELEBREX [Concomitant]
     Indication: RHEUMATOID ARTHRITIS
     Dosage: 200 MG, QD
     Route: 048
  8. CELEBREX [Concomitant]
     Indication: OSTEOARTHRITIS
  9. TRAMADOL [Concomitant]
     Indication: OSTEOARTHRITIS
     Dosage: 50 MG, AS NECESSARY
     Route: 048
  10. TRAMADOL [Concomitant]
     Indication: RHEUMATOID ARTHRITIS
  11. TIZANIDINE [Concomitant]
     Indication: MYALGIA
     Dosage: 4 MG, QHS
     Route: 048
  12. LORTAB                             /00607101/ [Concomitant]
     Indication: OSTEOARTHRITIS
     Dosage: 10 MG, AS NECESSARY
     Route: 048

REACTIONS (4)
  - Upper limb fracture [Not Recovered/Not Resolved]
  - Headache [Recovered/Resolved]
  - Fall [Recovered/Resolved]
  - Sinus disorder [Unknown]
